FAERS Safety Report 14204122 (Version 1)
Quarter: 2017Q4

REPORT INFORMATION
  Report Type: Spontaneous
  Country: US (occurrence: US)
  Receive Date: 20171117
  Receipt Date: 20171117
  Transmission Date: 20180321
  Serious: Yes (Other)
  Sender: FDA-Public Use
  Company Number: None

PATIENT
  Age: 20 Year
  Sex: Female
  Weight: 63 kg

DRUGS (1)
  1. CLINIQUE ACNE SOLUTION CLEAR SYSTEM KIT [Suspect]
     Active Substance: BENZOYL PEROXIDE\SALICYLIC ACID
     Indication: ACNE
     Route: 061
     Dates: start: 20171031, end: 20171116

REACTIONS (4)
  - Skin exfoliation [None]
  - Erythema [None]
  - Rash pustular [None]
  - Dermatitis [None]

NARRATIVE: CASE EVENT DATE: 20171116
